FAERS Safety Report 5712323-4 (Version None)
Quarter: 2008Q2

REPORT INFORMATION
  Report Type: 
  Country: None (occurrence: None)
  Receive Date: 20080417
  Receipt Date: 20080401
  Transmission Date: 20081010
  Serious: Yes (Life-Threatening, Hospitalization)
  Sender: FDA-Public Use
  Company Number: US-CVT-080021

PATIENT
  Age: 69 Year
  Sex: Female
  Weight: 87 kg

DRUGS (23)
  1. RANEXA [Suspect]
     Indication: ANGINA PECTORIS
     Dosage: 500 MG, BID, ORAL
     Route: 048
     Dates: end: 20080218
  2. AMIODARONE HCL [Suspect]
     Indication: DRUG USE FOR UNKNOWN INDICATION
     Dosage: 150 MG, X 2, INTRAVENOUS;   1 MG/MIN, IV DRIP
     Route: 042
     Dates: start: 20080218, end: 20080218
  3. AMIODARONE HCL [Suspect]
     Indication: DRUG USE FOR UNKNOWN INDICATION
     Dosage: 150 MG, X 2, INTRAVENOUS;   1 MG/MIN, IV DRIP
     Route: 042
     Dates: start: 20080218, end: 20080218
  4. FLUOXETINE HCL [Suspect]
     Indication: DEPRESSION
     Dosage: 20 MG, QD, ORAL
     Route: 048
     Dates: end: 20080218
  5. ROMMIX (ERYTHROMYCIN) [Suspect]
     Indication: DRUG USE FOR UNKNOWN INDICATION
     Dates: end: 20080218
  6. LIPITOR [Concomitant]
  7. POTASSIUM CHLORIDE [Concomitant]
  8. COZAAR [Concomitant]
  9. AMLODIPINE [Concomitant]
  10. ZANTAC [Concomitant]
  11. ATENOLOL [Concomitant]
  12. ISOSORBIDE (ISOSORBIDE) [Concomitant]
  13. PLAVIX [Concomitant]
  14. COMBIVENT /01033501/ (IPRATROPIUM BROMIDE, SALBUTAMOL) [Concomitant]
  15. MELOXICAM [Concomitant]
  16. PROTONIX /01263201/ (PANTOPRAZOLE) [Concomitant]
  17. NITROGLYCERIN [Concomitant]
  18. MAGNESIUM /00123201/ (MAGNESIUM HYDROXIDE) [Concomitant]
  19. TRAMADOL /00599201/ (TRAMADOL) [Concomitant]
  20. ALPRAZOLAM [Concomitant]
  21. CIMETIDINE [Concomitant]
  22. ATORVASTATIN /01326101/ (ATORVASTATIN) [Concomitant]
  23. BUMEX [Concomitant]

REACTIONS (18)
  - ANGINA PECTORIS [None]
  - BLOOD MAGNESIUM DECREASED [None]
  - BLOOD POTASSIUM DECREASED [None]
  - BLOOD PRESSURE INCREASED [None]
  - BRADYCARDIA [None]
  - CARDIAC ARREST [None]
  - CARDIOMEGALY [None]
  - CHILLS [None]
  - DECREASED APPETITE [None]
  - DIARRHOEA [None]
  - DYSPNOEA [None]
  - MALAISE [None]
  - ORTHOPNOEA [None]
  - PITTING OEDEMA [None]
  - PULMONARY CONGESTION [None]
  - PYREXIA [None]
  - TORSADE DE POINTES [None]
  - VENTRICULAR TACHYCARDIA [None]
